FAERS Safety Report 19271767 (Version 1)
Quarter: 2021Q2

REPORT INFORMATION
  Report Type: Spontaneous
  Country: FR (occurrence: FR)
  Receive Date: 20210519
  Receipt Date: 20210519
  Transmission Date: 20210717
  Serious: Yes (Life-Threatening, Other)
  Sender: FDA-Public Use
  Company Number: FR-AUROBINDO-AUR-APL-2021-019791

PATIENT
  Sex: Male

DRUGS (2)
  1. MELPHALAN. [Suspect]
     Active Substance: MELPHALAN
     Indication: CHOROID MELANOMA
     Dosage: UNK
     Route: 041
     Dates: start: 20170926, end: 20170926
  2. IOBITRIDOL [Suspect]
     Active Substance: IOBITRIDOL
     Indication: THERAPEUTIC EMBOLISATION
     Dosage: UNK
     Route: 041
     Dates: start: 20170926, end: 20170926

REACTIONS (1)
  - Anaphylactic shock [Recovered/Resolved]

NARRATIVE: CASE EVENT DATE: 20170926
